FAERS Safety Report 6841814-8 (Version None)
Quarter: 2010Q3

REPORT INFORMATION
  Report Type: 
  Country: None (occurrence: None)
  Receive Date: 20100714
  Receipt Date: 20070715
  Transmission Date: 20110219
  Serious: Yes (Other)
  Sender: FDA-Public Use
  Company Number: US-PFIZER INC-2007058914

PATIENT
  Sex: Female
  Weight: 110 kg

DRUGS (3)
  1. CHANTIX [Suspect]
     Indication: SMOKING CESSATION THERAPY
     Dosage: DAILY
     Route: 048
     Dates: start: 20070601, end: 20070701
  2. LOTREL [Concomitant]
     Indication: BLOOD PRESSURE
  3. ZYRTEC [Concomitant]
     Indication: HYPERSENSITIVITY

REACTIONS (3)
  - HYPERSENSITIVITY [None]
  - OEDEMA [None]
  - WEIGHT INCREASED [None]
